FAERS Safety Report 17273542 (Version 1)
Quarter: 2020Q1

REPORT INFORMATION
  Report Type: Report from Study
  Country: CA (occurrence: CA)
  Receive Date: 20200115
  Receipt Date: 20200115
  Transmission Date: 20200409
  Serious: Yes (Hospitalization, Other)
  Sender: FDA-Public Use
  Company Number: CA-GILEAD-2020-0446539

PATIENT
  Age: 43 Year
  Sex: Male

DRUGS (18)
  1. CIPROFLOXACIN. [Suspect]
     Active Substance: CIPROFLOXACIN
     Indication: INFLUENZA LIKE ILLNESS
     Route: 048
  2. TAMIFLU [Concomitant]
     Active Substance: OSELTAMIVIR PHOSPHATE
  3. MEROPENEM. [Suspect]
     Active Substance: MEROPENEM
     Indication: INFLUENZA LIKE ILLNESS
     Route: 042
  4. CICLESONIDE [Concomitant]
     Active Substance: CICLESONIDE
  5. PANCRELIPASE. [Concomitant]
     Active Substance: PANCRELIPASE
  6. SULFAMETHOXAZOLE;TRIMETHOPRIM [Concomitant]
     Active Substance: SULFAMETHOXAZOLE\TRIMETHOPRIM
  7. AZTREONAM LYSINE [Suspect]
     Active Substance: AZTREONAM LYSINE
     Indication: CYSTIC FIBROSIS
     Dosage: 75 MG, TID
     Route: 055
  8. HYDROCORTISONE. [Concomitant]
     Active Substance: HYDROCORTISONE
  9. AZTREONAM LYSINE [Suspect]
     Active Substance: AZTREONAM LYSINE
     Indication: PSEUDOMONAS INFECTION
  10. INSULIN [Concomitant]
     Active Substance: INSULIN NOS
  11. MONTELUKAST [Concomitant]
     Active Substance: MONTELUKAST SODIUM
  12. OSELTAMIVIR [Concomitant]
     Active Substance: OSELTAMIVIR
  13. VANCOMYCIN [Concomitant]
     Active Substance: VANCOMYCIN
  14. BUDESONIDE;FORMOTEROL [Concomitant]
     Active Substance: BUDESONIDE\FORMOTEROL
  15. OMALIZUMAB. [Concomitant]
     Active Substance: OMALIZUMAB
  16. TOBRAMYCIN. [Concomitant]
     Active Substance: TOBRAMYCIN
  17. VITAMINS NOS [Concomitant]
     Active Substance: VITAMINS
  18. ZITHROMAX [Concomitant]
     Active Substance: AZITHROMYCIN DIHYDRATE

REACTIONS (2)
  - Toxic epidermal necrolysis [Recovered/Resolved]
  - Stevens-Johnson syndrome [Recovered/Resolved]
